FAERS Safety Report 5767073-5 (Version None)
Quarter: 2008Q2

REPORT INFORMATION
  Report Type: 
  Country: None (occurrence: None)
  Receive Date: 20080612
  Receipt Date: 20080605
  Transmission Date: 20081010
  Serious: Yes (Hospitalization, Other)
  Sender: FDA-Public Use
  Company Number: BR-ASTRAZENECA-2008UW11424

PATIENT
  Age: 91 Year
  Sex: Female
  Weight: 65 kg

DRUGS (4)
  1. SEROQUEL [Suspect]
     Indication: DEMENTIA ALZHEIMER'S TYPE
     Route: 048
     Dates: end: 20080526
  2. SEROQUEL [Suspect]
     Route: 048
     Dates: start: 20080527
  3. RISPERIDONA [Concomitant]
     Indication: DEMENTIA ALZHEIMER'S TYPE
     Route: 048
     Dates: start: 20080602
  4. OLEO DE LINHACA [Concomitant]
     Route: 048

REACTIONS (5)
  - AGGRESSION [None]
  - CONSTIPATION [None]
  - COUGH [None]
  - NEURODEGENERATIVE DISORDER [None]
  - PANIC ATTACK [None]
